FAERS Safety Report 15392760 (Version 1)
Quarter: 2018Q3

REPORT INFORMATION
  Report Type: Spontaneous
  Country: GB (occurrence: GB)
  Receive Date: 20180911
  Receipt Date: 20180911
  Transmission Date: 20181010
  Serious: No
  Sender: FDA-Public Use
  Company Number: None

PATIENT
  Sex: Female
  Weight: 77 kg

DRUGS (1)
  1. MIRENA [Suspect]
     Active Substance: LEVONORGESTREL
     Dates: start: 20180905, end: 20180911

REACTIONS (4)
  - Disorientation [None]
  - Panic attack [None]
  - Mood swings [None]
  - Suicidal ideation [None]

NARRATIVE: CASE EVENT DATE: 20180911
